FAERS Safety Report 6522645-5 (Version None)
Quarter: 2009Q4

REPORT INFORMATION
  Report Type: 
  Country: None (occurrence: None)
  Receive Date: 20091230
  Receipt Date: 20091215
  Transmission Date: 20100525
  Serious: Yes (Hospitalization, Other)
  Sender: FDA-Public Use
  Company Number: BR-PFIZER INC-2009310169

PATIENT
  Sex: Female

DRUGS (1)
  1. CELEBRA [Suspect]
     Dosage: 200 MG, UNK
     Route: 048
     Dates: start: 20091205

REACTIONS (4)
  - ARRHYTHMIA [None]
  - DYSPNOEA [None]
  - HYPOAESTHESIA [None]
  - SYNCOPE [None]
